FAERS Safety Report 23084042 (Version 1)
Quarter: 2023Q4

REPORT INFORMATION
  Report Type: Spontaneous
  Country: US (occurrence: US)
  Receive Date: 20231019
  Receipt Date: 20231019
  Transmission Date: 20240110
  Serious: Yes (Other)
  Sender: FDA-Public Use
  Company Number: US-FreseniusKabi-FK202316612

PATIENT
  Age: 78 Year
  Sex: Male

DRUGS (8)
  1. VANCOMYCIN [Suspect]
     Active Substance: VANCOMYCIN
     Indication: Alpha haemolytic streptococcal infection
  2. VANCOMYCIN [Suspect]
     Active Substance: VANCOMYCIN
     Indication: Endocarditis
  3. GENTAMICIN [Suspect]
     Active Substance: GENTAMICIN
     Indication: Alpha haemolytic streptococcal infection
  4. GENTAMICIN [Suspect]
     Active Substance: GENTAMICIN
     Indication: Endocarditis
  5. CEFTRIAXONE [Concomitant]
     Active Substance: CEFTRIAXONE\CEFTRIAXONE SODIUM
     Indication: Alpha haemolytic streptococcal infection
  6. CEFTRIAXONE [Concomitant]
     Active Substance: CEFTRIAXONE\CEFTRIAXONE SODIUM
     Indication: Endocarditis
  7. CEFAZOLIN [Concomitant]
     Active Substance: CEFAZOLIN
     Indication: Alpha haemolytic streptococcal infection
  8. CEFAZOLIN [Concomitant]
     Active Substance: CEFAZOLIN
     Indication: Endocarditis

REACTIONS (3)
  - Acute kidney injury [Unknown]
  - Encephalopathy [Unknown]
  - Ototoxicity [Unknown]
